FAERS Safety Report 13981198 (Version 1)
Quarter: 2017Q3

REPORT INFORMATION
  Report Type: Spontaneous
  Country: US (occurrence: US)
  Receive Date: 20170915
  Receipt Date: 20170915
  Transmission Date: 20171128
  Serious: Yes (Other)
  Sender: FDA-Public Use
  Company Number: None

PATIENT
  Age: 63 Year
  Sex: Male
  Weight: 90.45 kg

DRUGS (7)
  1. DILTIAZEM. [Concomitant]
     Active Substance: DILTIAZEM
  2. MULTIVITAMIN [Concomitant]
     Active Substance: VITAMINS
  3. PRAVASTATIN. [Concomitant]
     Active Substance: PRAVASTATIN
  4. VALIUM [Concomitant]
     Active Substance: DIAZEPAM
  5. NORTRIPOLINE [Concomitant]
  6. RHODES PHARMACEUTICALS GENERIC PERCOCET 10 325 [Suspect]
     Active Substance: ACETAMINOPHEN\OXYCODONE HYDROCHLORIDE
     Indication: PAIN MANAGEMENT
     Dosage: ?          QUANTITY:120 TABLET(S);?
     Route: 048
  7. NASAL SPRAY [Concomitant]
     Active Substance: UNSPECIFIED INGREDIENT

REACTIONS (7)
  - Product substitution issue [None]
  - Vomiting [None]
  - Muscle spasms [None]
  - Malaise [None]
  - Product formulation issue [None]
  - Product measured potency issue [None]
  - Toxicity to various agents [None]

NARRATIVE: CASE EVENT DATE: 20170905
